FAERS Safety Report 23601638 (Version 2)
Quarter: 2024Q2

REPORT INFORMATION
  Report Type: Report from Study
  Country: US (occurrence: US)
  Receive Date: 20240306
  Receipt Date: 20240610
  Transmission Date: 20240716
  Serious: No
  Sender: FDA-Public Use
  Company Number: US-SANDOZ-SDZ2024US020507

PATIENT
  Age: 10 Year
  Sex: Female

DRUGS (2)
  1. OMNITROPE [Suspect]
     Active Substance: SOMATROPIN
     Indication: Hypopituitarism
     Dosage: 0.7 MG, QD
     Route: 058
     Dates: start: 20240213
  2. OMNITROPE [Suspect]
     Active Substance: SOMATROPIN
     Indication: Hypopituitarism
     Dosage: 0.7 MG, QD
     Route: 058
     Dates: start: 20240213

REACTIONS (2)
  - Circumstance or information capable of leading to medication error [Unknown]
  - Needle issue [Unknown]

NARRATIVE: CASE EVENT DATE: 20240213
